FAERS Safety Report 18953690 (Version 1)
Quarter: 2021Q1

REPORT INFORMATION
  Report Type: Spontaneous
  Country: US (occurrence: US)
  Receive Date: 20210226
  Receipt Date: 20210226
  Transmission Date: 20210420
  Serious: Yes (Death)
  Sender: FDA-Public Use
  Company Number: None

PATIENT
  Age: 85 Year
  Sex: Female

DRUGS (9)
  1. RAYALDEE [Suspect]
     Active Substance: CALCIFEDIOL
     Indication: HYPERPARATHYROIDISM
     Route: 048
     Dates: start: 20190917, end: 20210126
  2. AMLODIPINE [Concomitant]
     Active Substance: AMLODIPINE BESYLATE
  3. METOPROLOL SUCCINATE. [Concomitant]
     Active Substance: METOPROLOL SUCCINATE
  4. PROCRIT [Concomitant]
     Active Substance: ERYTHROPOIETIN
  5. VITAMIN D3 [Concomitant]
     Active Substance: CHOLECALCIFEROL
  6. RAYALDEE [Suspect]
     Active Substance: CALCIFEDIOL
     Indication: RENAL FAILURE
     Route: 048
     Dates: start: 20190917, end: 20210126
  7. SEVELAMER CARBONATE. [Concomitant]
     Active Substance: SEVELAMER CARBONATE
  8. FERROUS SULFATE. [Concomitant]
     Active Substance: FERROUS SULFATE
  9. VITAMIN B12 [Concomitant]
     Active Substance: CYANOCOBALAMIN

REACTIONS (1)
  - End stage renal disease [None]

NARRATIVE: CASE EVENT DATE: 2021
